FAERS Safety Report 7633166-0 (Version None)
Quarter: 2011Q3

REPORT INFORMATION
  Report Type: 
  Country: None (occurrence: None)
  Receive Date: 20110725
  Receipt Date: 20110713
  Transmission Date: 20111222
  Serious: Yes (Other)
  Sender: FDA-Public Use
  Company Number: US-ROCHE-770944

PATIENT
  Sex: Female
  Weight: 63.5 kg

DRUGS (2)
  1. ACCUTANE [Suspect]
     Route: 065
     Dates: start: 19880104, end: 19880518
  2. ACCUTANE [Suspect]
     Dosage: DURATION 5 MONTH
     Route: 065
     Dates: start: 19860101

REACTIONS (7)
  - COLON ADENOMA [None]
  - CROHN'S DISEASE [None]
  - INFLAMMATORY BOWEL DISEASE [None]
  - IRRITABLE BOWEL SYNDROME [None]
  - OSTEOPENIA [None]
  - COLITIS ULCERATIVE [None]
  - DEPRESSION [None]
